FAERS Safety Report 18659741 (Version 1)
Quarter: 2020Q4

REPORT INFORMATION
  Report Type: Spontaneous
  Country: US (occurrence: US)
  Receive Date: 20201223
  Receipt Date: 20201223
  Transmission Date: 20210114
  Serious: Yes (Other)
  Sender: FDA-Public Use
  Company Number: None

PATIENT
  Age: 48 Year
  Sex: Male
  Weight: 184 kg

DRUGS (11)
  1. REMDESIVIR. [Concomitant]
     Active Substance: REMDESIVIR
     Dates: start: 20201214
  2. REMDESIVIR. [Suspect]
     Active Substance: REMDESIVIR
     Indication: COVID-19
     Route: 042
     Dates: start: 20201214
  3. INSULIN DETEMIR [Concomitant]
     Active Substance: INSULIN DETEMIR
     Dates: start: 20201216
  4. FUROSEMIDE. [Concomitant]
     Active Substance: FUROSEMIDE
     Dates: start: 20201216
  5. BENZONATATE. [Concomitant]
     Active Substance: BENZONATATE
     Dates: start: 20201216
  6. LORAZEPAM. [Concomitant]
     Active Substance: LORAZEPAM
     Dates: start: 20201216
  7. SENNA [Concomitant]
     Active Substance: SENNA LEAF\SENNOSIDES\SENNOSIDES A AND B
     Dates: start: 20201222
  8. DEXAMETHASONE. [Concomitant]
     Active Substance: DEXAMETHASONE
     Dates: start: 20201214
  9. DOXYCYCLINE. [Concomitant]
     Active Substance: DOXYCYCLINE
     Dates: start: 20201216, end: 20201222
  10. ENOXAPARIN [Concomitant]
     Active Substance: ENOXAPARIN
     Dates: start: 20201214
  11. INSULIN ASPART [Concomitant]
     Active Substance: INSULIN ASPART
     Dates: start: 20201215

REACTIONS (3)
  - Bradycardia [None]
  - Dyspnoea [None]
  - Pyrexia [None]

NARRATIVE: CASE EVENT DATE: 20201221
